FAERS Safety Report 6985335-0 (Version None)
Quarter: 2010Q3

REPORT INFORMATION
  Report Type: 
  Country: None (occurrence: None)
  Receive Date: 20100915
  Receipt Date: 20100903
  Transmission Date: 20110219
  Serious: Yes (Other)
  Sender: FDA-Public Use
  Company Number: US-PFIZER INC-2010063178

PATIENT
  Sex: Female
  Weight: 59.86 kg

DRUGS (11)
  1. LYRICA [Suspect]
     Dosage: 25 MG, 3X/DAY
     Route: 048
     Dates: start: 20100430
  2. LYRICA [Suspect]
     Dosage: 100 MG, 2X/DAY
     Route: 048
     Dates: start: 20100101
  3. WARFARIN [Concomitant]
     Dosage: UNK
  4. CRESTOR [Concomitant]
     Dosage: 5 MG, 1X/DAY
  5. LISINOPRIL [Concomitant]
     Dosage: 20 MG, 1X/DAY
  6. NORCO [Concomitant]
     Indication: PAIN
     Dosage: 10/325MG, 4X/DAY AS NEEDED
  7. ZANAFLEX [Concomitant]
     Dosage: 1-2 CAPSULES 4MG CAPSULES; DAILY AS NEEDED
  8. ATENOLOL [Concomitant]
     Dosage: 25 MG, 1X/DAY
  9. CALCIUM CARBONATE/COLECALCIFEROL [Concomitant]
     Dosage: 600/400MG ; ONCE DAILY
  10. CLOBETASOL PROPIONATE [Concomitant]
     Dosage: 0.05 %, 2X/DAY
  11. LORATADINE [Concomitant]
     Dosage: 10 MG, 1X/DAY

REACTIONS (8)
  - ABNORMAL DREAMS [None]
  - GAIT DISTURBANCE [None]
  - HOT FLUSH [None]
  - INSOMNIA [None]
  - MUSCULAR WEAKNESS [None]
  - OEDEMA PERIPHERAL [None]
  - PAIN IN EXTREMITY [None]
  - SALIVARY HYPERSECRETION [None]
